FAERS Safety Report 25648593 (Version 2)
Quarter: 2025Q3

REPORT INFORMATION
  Report Type: Report from Study
  Country: US (occurrence: US)
  Receive Date: 20250806
  Receipt Date: 20250915
  Transmission Date: 20251021
  Serious: Yes (Life-Threatening, Hospitalization, Other)
  Sender: TAKEDA
  Company Number: US-TAKEDA-2022TUS035047

PATIENT
  Age: 55 Year
  Sex: Male

DRUGS (12)
  1. LANADELUMAB [Suspect]
     Active Substance: LANADELUMAB
     Indication: Immune system disorder
     Dosage: 300 MILLIGRAM, Q2WEEKS
     Dates: start: 201905
  2. LANADELUMAB [Suspect]
     Active Substance: LANADELUMAB
     Indication: Hereditary angioedema
     Dosage: 300 MILLIGRAM, Q2WEEKS
     Dates: start: 201910
  3. LANADELUMAB [Suspect]
     Active Substance: LANADELUMAB
     Dosage: 300 MILLIGRAM, Q4WEEKS
  4. LANADELUMAB [Suspect]
     Active Substance: LANADELUMAB
     Dosage: 300 MILLIGRAM, Q2WEEKS
  5. LANADELUMAB [Suspect]
     Active Substance: LANADELUMAB
     Dosage: UNK UNK, Q2WEEKS
  6. LANADELUMAB [Suspect]
     Active Substance: LANADELUMAB
     Dosage: UNK UNK, Q4WEEKS
  7. DUPIXENT [Suspect]
     Active Substance: DUPILUMAB
     Indication: Dermatitis atopic
     Dosage: 300 MILLIGRAM, Q2WEEKS
     Dates: start: 202209
  8. DUPIXENT [Suspect]
     Active Substance: DUPILUMAB
     Indication: Dermatitis
     Dosage: 300 MILLIGRAM, Q2WEEKS
     Dates: start: 2022, end: 202409
  9. DUPIXENT [Suspect]
     Active Substance: DUPILUMAB
     Indication: Rash
  10. EPINEPHRINE [Concomitant]
     Active Substance: EPINEPHRINE
  11. ICATIBANT ACETATE [Concomitant]
     Active Substance: ICATIBANT ACETATE
  12. TRAZODONE [Concomitant]
     Active Substance: TRAZODONE HYDROCHLORIDE
     Indication: Sleep disorder

REACTIONS (18)
  - Hereditary angioedema [Recovered/Resolved]
  - Stridor [Recovered/Resolved]
  - Respiratory symptom [Recovered/Resolved]
  - Bronchospasm [Recovered/Resolved]
  - COVID-19 [Recovered/Resolved]
  - Enterococcus test positive [Recovered/Resolved]
  - Pneumonia staphylococcal [Recovered/Resolved]
  - Beta haemolytic streptococcal infection [Recovered/Resolved]
  - Asthenia [Recovered/Resolved]
  - Nausea [Recovered/Resolved]
  - Sedation [Recovered/Resolved]
  - Product dose omission issue [Recovered/Resolved]
  - Drug ineffective [Recovered/Resolved]
  - Weight increased [Unknown]
  - Weight decreased [Unknown]
  - Influenza [Unknown]
  - Lymphadenopathy [Unknown]
  - Injection site bruising [Unknown]

NARRATIVE: CASE EVENT DATE: 20220519
